FAERS Safety Report 4348311-2 (Version None)
Quarter: 2004Q2

REPORT INFORMATION
  Report Type: 
  Country: None (occurrence: None)
  Receive Date: 20040427
  Receipt Date: 20031105
  Transmission Date: 20050107
  Serious: Yes (Other)
  Sender: FDA-Public Use
  Company Number: US-GLAXOSMITHKLINE-A0433155A

PATIENT
  Sex: Female
  Weight: 88.6 kg

DRUGS (16)
  1. AVANDIA [Suspect]
     Indication: BLOOD GLUCOSE INCREASED
     Dosage: 4MG PER DAY
     Route: 048
     Dates: start: 20030201
  2. VIOXX [Concomitant]
     Indication: OSTEOARTHRITIS
     Dates: end: 20030901
  3. CARBATROL [Concomitant]
     Dosage: 400MG TWICE PER DAY
  4. DEPAKOTE [Concomitant]
     Dosage: 1000MG AT NIGHT
  5. METFORMIN HCL [Concomitant]
     Dosage: 1000MG TWICE PER DAY
  6. ALDACTONE [Concomitant]
     Dosage: 25MG PER DAY
  7. PROZAC [Concomitant]
     Dosage: 20MG TWICE PER DAY
  8. NEXIUM [Concomitant]
  9. NADOLOL [Concomitant]
  10. RISPERDAL [Concomitant]
  11. NEURONTIN [Concomitant]
  12. TRICOR [Concomitant]
  13. GLYBURIDE [Concomitant]
  14. DARVOCET-N 100 [Concomitant]
  15. UNKNOWN MEDICATION [Concomitant]
     Dosage: 2U TWICE PER DAY
  16. UNKNOWN MEDICATION [Concomitant]
     Dosage: 100U THREE TIMES PER DAY

REACTIONS (6)
  - BLOOD GLUCOSE INCREASED [None]
  - DIABETES MELLITUS INADEQUATE CONTROL [None]
  - FLUID RETENTION [None]
  - NEUROPATHY PERIPHERAL [None]
  - PAIN IN EXTREMITY [None]
  - WEIGHT DECREASED [None]
